FAERS Safety Report 9193509 (Version 2)
Quarter: 2013Q2

REPORT INFORMATION
  Report Type: Spontaneous
  Country: US (occurrence: US)
  Receive Date: 20130327
  Receipt Date: 20130405
  Transmission Date: 20140414
  Serious: Yes (Congenital Anomaly, Other)
  Sender: FDA-Public Use
  Company Number: US-PFIZER INC-2013096175

PATIENT
  Sex: Female

DRUGS (3)
  1. ZOLOFT [Suspect]
     Indication: DEPRESSION
     Dosage: UNK
     Route: 064
     Dates: start: 20060717
  2. SERTRALINE HCL [Suspect]
     Indication: DEPRESSION
     Dosage: UNK
     Route: 064
     Dates: start: 20060717
  3. PRENATAL VITAMINS [Concomitant]
     Dosage: UNK
     Route: 064

REACTIONS (13)
  - Foetal exposure during pregnancy [Unknown]
  - Aniridia [Unknown]
  - Coloboma [Unknown]
  - Congenital optic nerve anomaly [Unknown]
  - Microcornea [Unknown]
  - Retinal anomaly congenital [Unknown]
  - Atrial septal defect [Unknown]
  - Congenital anomaly [Unknown]
  - Congenital nystagmus [Unknown]
  - Eyelid ptosis congenital [Unknown]
  - Iris coloboma [Unknown]
  - Eye disorder [Unknown]
  - Eyelid disorder [Unknown]
